FAERS Safety Report 24809737 (Version 2)
Quarter: 2025Q1

REPORT INFORMATION
  Report Type: Spontaneous
  Country: US (occurrence: US)
  Receive Date: 20250106
  Receipt Date: 20250219
  Transmission Date: 20250408
  Serious: No
  Sender: EYWA PHARMA INC.
  Company Number: US-Eywa Pharma Inc.-2168457

PATIENT

DRUGS (9)
  1. BACLOFEN [Suspect]
     Active Substance: BACLOFEN
     Indication: Arthralgia
  2. BACLOFEN [Suspect]
     Active Substance: BACLOFEN
     Indication: Pain
  3. BACLOFEN [Suspect]
     Active Substance: BACLOFEN
     Indication: Muscle spasms
  4. BACLOFEN [Suspect]
     Active Substance: BACLOFEN
     Indication: Myalgia
  5. LYRICA [Suspect]
     Active Substance: PREGABALIN
  6. GABAPENTIN [Suspect]
     Active Substance: GABAPENTIN
  7. FLEXERIL [Suspect]
     Active Substance: CYCLOBENZAPRINE HYDROCHLORIDE
  8. AMITRIPTYLINE HYDROCHLORIDE [Suspect]
     Active Substance: AMITRIPTYLINE HYDROCHLORIDE
  9. TRAMADOL [Suspect]
     Active Substance: TRAMADOL

REACTIONS (2)
  - Drug ineffective [Unknown]
  - Drug ineffective for unapproved indication [Unknown]
